FAERS Safety Report 10384267 (Version 1)
Quarter: 2014Q3

REPORT INFORMATION
  Report Type: Not Available
  Country: US (occurrence: US)
  Receive Date: 20140814
  Receipt Date: 20140814
  Transmission Date: 20150326
  Serious: No
  Sender: FDA-Public Use
  Company Number: US-LUPIN PHARMACEUTICALS INC.-E2B_00002237

PATIENT
  Age: 8 Year
  Sex: Female

DRUGS (1)
  1. CIPROFLOXACIN ORAL SUSPENSION 250MG/5ML [Suspect]
     Active Substance: CIPROFLOXACIN
     Indication: CYSTITIS
     Dosage: 250MG/5ML TWICE DAILY: 500MG/10ML
     Dates: start: 20140618

REACTIONS (2)
  - Liquid product physical issue [Unknown]
  - Pyrexia [Not Recovered/Not Resolved]

NARRATIVE: CASE EVENT DATE: 20140618
